FAERS Safety Report 13214041 (Version 1)
Quarter: 2017Q1

REPORT INFORMATION
  Report Type: Spontaneous
  Country: US (occurrence: US)
  Receive Date: 20170209
  Receipt Date: 20170209
  Transmission Date: 20170428
  Serious: No
  Sender: FDA-Public Use
  Company Number: US-ALLERGAN-1667757US

PATIENT
  Sex: Female

DRUGS (2)
  1. XANAX [Concomitant]
     Active Substance: ALPRAZOLAM
     Indication: PRODUCT USED FOR UNKNOWN INDICATION
     Route: 065
  2. BOTOX [Suspect]
     Active Substance: ONABOTULINUMTOXINA
     Indication: SKIN WRINKLING
     Dosage: 4 UNITS, SINGLE
     Route: 030
     Dates: start: 20160322, end: 20160322

REACTIONS (9)
  - Diplopia [Unknown]
  - Blood pressure decreased [Unknown]
  - Stress [Not Recovered/Not Resolved]
  - Dizziness [Unknown]
  - Heart rate decreased [Unknown]
  - Facial asymmetry [Unknown]
  - Temporomandibular joint syndrome [Not Recovered/Not Resolved]
  - Tachycardia [Unknown]
  - Anxiety [Not Recovered/Not Resolved]
